FAERS Safety Report 4581428-6 (Version None)
Quarter: 2005Q1

REPORT INFORMATION
  Report Type: 
  Country: None (occurrence: None)
  Receive Date: 20050214
  Receipt Date: 20041021
  Transmission Date: 20050727
  Serious: No
  Sender: FDA-Public Use
  Company Number: US-GLAXOSMITHKLINE-A0530814A

PATIENT
  Age: 6 Year
  Sex: Female

DRUGS (2)
  1. LAMICTAL [Suspect]
     Route: 048
  2. ELAVIL [Concomitant]

REACTIONS (2)
  - DYSARTHRIA [None]
  - MUSCULOSKELETAL STIFFNESS [None]
